FAERS Safety Report 23116232 (Version 1)
Quarter: 2023Q4

REPORT INFORMATION
  Report Type: Spontaneous
  Country: US (occurrence: None)
  Receive Date: 20231024
  Receipt Date: 20231024
  Transmission Date: 20240110
  Serious: No
  Sender: FDA-Public Use
  Company Number: None

PATIENT
  Age: 76 Year
  Sex: Female

DRUGS (14)
  1. TACROLIMUS [Suspect]
     Active Substance: TACROLIMUS
     Indication: Heart transplant
     Dosage: FREQUENCY : TWICE A DAY;?
     Route: 048
     Dates: start: 20170301
  2. ARANESP [Concomitant]
     Active Substance: DARBEPOETIN ALFA
  3. AVELOX [Concomitant]
     Active Substance: MOXIFLOXACIN HYDROCHLORIDE
  4. AZATHIOPRINE [Concomitant]
     Active Substance: AZATHIOPRINE
  5. CALCIUM/D [Concomitant]
  6. CLARITIN-D NOS [Concomitant]
     Active Substance: LORATADINE\PSEUDOEPHEDRINE SULFATE
  7. CLONAZEPAM [Concomitant]
     Active Substance: CLONAZEPAM
  8. FOLIC ACID [Concomitant]
     Active Substance: FOLIC ACID
  9. LIPITOR [Concomitant]
     Active Substance: ATORVASTATIN CALCIUM
  10. MULTI-VITAMIN [Concomitant]
     Active Substance: .ALPHA.-TOCOPHEROL ACETATE, DL-\ASCORBIC ACID\CYANOCOBALAMIN\FLUORIDE ION\FOLIC ACID\NIACIN\PYRIDOXI
  11. PREDNISONE [Concomitant]
     Active Substance: PREDNISONE
  12. PREDNISONE [Concomitant]
     Active Substance: PREDNISONE
  13. TYLENOL ARTH [Concomitant]
  14. ZOLOFT [Concomitant]
     Active Substance: SERTRALINE HYDROCHLORIDE

REACTIONS (2)
  - Dehydration [None]
  - Therapy interrupted [None]

NARRATIVE: CASE EVENT DATE: 20231016
